FAERS Safety Report 14983776 (Version 1)
Quarter: 2018Q2

REPORT INFORMATION
  Report Type: Spontaneous
  Country: MX (occurrence: MX)
  Receive Date: 20180607
  Receipt Date: 20180607
  Transmission Date: 20180711
  Serious: Yes (Other)
  Sender: FDA-Public Use
  Company Number: MX-GUERBET-MX-20180013

PATIENT
  Age: 43 Year
  Sex: Male

DRUGS (3)
  1. SALIN SOLUTION [Concomitant]
     Indication: VENOGRAM
     Route: 042
     Dates: start: 20180509, end: 20180509
  2. OPTIRAY 240 [Suspect]
     Active Substance: IOVERSOL
     Indication: VENOGRAM
     Route: 042
     Dates: start: 20180509, end: 20180509
  3. LEVOTIROXINA [Concomitant]
     Indication: HYPOTHYROIDISM
     Route: 065

REACTIONS (6)
  - Blindness transient [Recovered/Resolved]
  - Wrong technique in product usage process [Recovered/Resolved]
  - Off label use [Recovered/Resolved]
  - Hypotension [Recovered/Resolved]
  - Hemiplegia [Recovered/Resolved]
  - Anxiety [Recovered/Resolved]

NARRATIVE: CASE EVENT DATE: 20180509
